FAERS Safety Report 18377985 (Version 1)
Quarter: 2020Q4

REPORT INFORMATION
  Report Type: Spontaneous
  Country: US (occurrence: US)
  Receive Date: 20201013
  Receipt Date: 20201013
  Transmission Date: 20210114
  Serious: Yes (Hospitalization, Other)
  Sender: FDA-Public Use
  Company Number: US-ABBVIE-20K-163-3602398-00

PATIENT
  Age: 41 Year
  Sex: Female
  Weight: 62.2 kg

DRUGS (3)
  1. MERCAPTOPURINE. [Concomitant]
     Active Substance: MERCAPTOPURINE
     Indication: PRODUCT USED FOR UNKNOWN INDICATION
  2. HUMIRA [Suspect]
     Active Substance: ADALIMUMAB
     Indication: CROHN^S DISEASE
     Route: 058
     Dates: start: 2015, end: 201601
  3. HUMIRA [Suspect]
     Active Substance: ADALIMUMAB
     Indication: COLITIS ULCERATIVE
     Route: 058
     Dates: start: 201602, end: 201602

REACTIONS (14)
  - Proctalgia [Recovering/Resolving]
  - Anal fistula [Recovering/Resolving]
  - Anal abscess [Recovering/Resolving]
  - Impaired healing [Recovering/Resolving]
  - Abdominal pain upper [Recovered/Resolved]
  - Pain [Recovered/Resolved]
  - Anorectal swelling [Recovering/Resolving]
  - Fatigue [Recovered/Resolved]
  - Rectal haemorrhage [Recovered/Resolved]
  - Weight decreased [Not Recovered/Not Resolved]
  - Infection [Recovering/Resolving]
  - Clostridium difficile infection [Recovered/Resolved]
  - Drug specific antibody present [Unknown]
  - Crohn^s disease [Recovered/Resolved]

NARRATIVE: CASE EVENT DATE: 201601
